FAERS Safety Report 6215175-1 (Version None)
Quarter: 2009Q2

REPORT INFORMATION
  Report Type: 
  Country: None (occurrence: None)
  Receive Date: 20090604
  Receipt Date: 20090521
  Transmission Date: 20091009
  Serious: Yes (Death)
  Sender: FDA-Public Use
  Company Number: NZ-MYLANLABS-2009S1008994

PATIENT
  Age: 22 Year
  Sex: Male

DRUGS (5)
  1. PAXAM [Suspect]
     Indication: DRUG USE FOR UNKNOWN INDICATION
     Route: 048
     Dates: start: 20071120, end: 20071101
  2. TETRABENAZINE [Suspect]
     Indication: CEREBRAL PALSY
     Route: 048
     Dates: start: 20071113, end: 20071117
  3. BENZTROPINE MESYLATE [Suspect]
     Indication: DRUG USE FOR UNKNOWN INDICATION
     Route: 048
     Dates: start: 20071116, end: 20071125
  4. DANTROLENE SODIUM [Suspect]
     Indication: MUSCLE SPASMS
     Route: 048
     Dates: start: 20071117, end: 20071117
  5. MORPHINE SULFATE [Concomitant]
     Indication: DRUG USE FOR UNKNOWN INDICATION
     Dates: start: 20071112, end: 20071101

REACTIONS (5)
  - CONVULSION [None]
  - DYSTONIA [None]
  - HALLUCINATION [None]
  - HYPERPYREXIA [None]
  - RESPIRATORY FAILURE [None]
